FAERS Safety Report 9204831 (Version 4)
Quarter: 2014Q3

REPORT INFORMATION
  Report Type: Spontaneous
  Country: US (occurrence: US)
  Receive Date: 20130402
  Receipt Date: 20140818
  Transmission Date: 20150326
  Serious: Yes (Hospitalization, Other)
  Sender: FDA-Public Use
  Company Number: US-009507513-1303USA014407

PATIENT
  Sex: Female
  Weight: 86.17 kg

DRUGS (1)
  1. NUVARING [Suspect]
     Active Substance: ETHINYL ESTRADIOL\ETONOGESTREL
     Indication: CONTRACEPTION
     Dosage: UNK
     Route: 067
     Dates: start: 201010, end: 20111030

REACTIONS (5)
  - Anxiety [Unknown]
  - Pulmonary embolism [Unknown]
  - Onychomycosis [Unknown]
  - Bunion operation [Unknown]
  - Acne [Unknown]

NARRATIVE: CASE EVENT DATE: 201105
